FAERS Safety Report 5726102-5 (Version None)
Quarter: 2008Q2

REPORT INFORMATION
  Report Type: 
  Country: None (occurrence: None)
  Receive Date: 20080502
  Receipt Date: 20080424
  Transmission Date: 20081010
  Serious: Yes (Hospitalization, Other)
  Sender: FDA-Public Use
  Company Number: US-ROCHE-438836

PATIENT
  Sex: Female
  Weight: 70.3 kg

DRUGS (6)
  1. ACCUTANE [Suspect]
     Route: 048
     Dates: start: 19840501, end: 19841101
  2. BLEPHAMIDE [Concomitant]
  3. BLEPHAMIDE [Concomitant]
  4. FLEXERIL [Concomitant]
  5. KEFLEX [Concomitant]
  6. PENICILLIN [Concomitant]

REACTIONS (30)
  - ANAEMIA [None]
  - ANXIETY [None]
  - ASTHENIA [None]
  - ASTHMA [None]
  - BACK PAIN [None]
  - COLITIS [None]
  - COLITIS ULCERATIVE [None]
  - COSTOCHONDRITIS [None]
  - CROHN'S DISEASE [None]
  - CYSTITIS HAEMORRHAGIC [None]
  - DEHYDRATION [None]
  - DEPRESSION [None]
  - FIBROMYALGIA [None]
  - GASTROINTESTINAL HAEMORRHAGE [None]
  - INFLAMMATORY BOWEL DISEASE [None]
  - IRRITABLE BOWEL SYNDROME [None]
  - MUSCULOSKELETAL STIFFNESS [None]
  - OESOPHAGEAL CANDIDIASIS [None]
  - OVARIAN CYST [None]
  - PAIN [None]
  - PLEURITIC PAIN [None]
  - PYODERMA GANGRENOSUM [None]
  - RHINITIS ALLERGIC [None]
  - ROAD TRAFFIC ACCIDENT [None]
  - SICCA SYNDROME [None]
  - SUICIDAL IDEATION [None]
  - SYNCOPE [None]
  - URINARY TRACT INFECTION [None]
  - UTERINE LEIOMYOMA [None]
  - VIRAL INFECTION [None]
